FAERS Safety Report 16388458 (Version 2)
Quarter: 2019Q2

REPORT INFORMATION
  Report Type: Spontaneous
  Country: US (occurrence: US)
  Receive Date: 20190604
  Receipt Date: 20190626
  Transmission Date: 20190711
  Serious: Yes (Disabling, Other)
  Sender: FDA-Public Use
  Company Number: US-PFIZER INC-2019186379

PATIENT
  Age: 52 Year
  Sex: Male

DRUGS (1)
  1. LYRICA [Suspect]
     Active Substance: PREGABALIN
     Dosage: 150 MG, 2X/DAY (TWO IN THE MORNING AND TWO AT NIGHT)

REACTIONS (7)
  - Condition aggravated [Unknown]
  - Mental disorder [Unknown]
  - Drug dependence [Unknown]
  - Deafness [Not Recovered/Not Resolved]
  - Eye disorder [Unknown]
  - Tooth disorder [Unknown]
  - Product dose omission [Unknown]

NARRATIVE: CASE EVENT DATE: 2013
